FAERS Safety Report 7256902-4 (Version None)
Quarter: 2011Q1

REPORT INFORMATION
  Report Type: 
  Country: None (occurrence: None)
  Receive Date: 20110129
  Receipt Date: 20100813
  Transmission Date: 20110831
  Serious: No
  Sender: FDA-Public Use
  Company Number: US-ABBOTT-10P-163-0659443-00

PATIENT
  Sex: Female
  Weight: 58.112 kg

DRUGS (7)
  1. LYRICA [Concomitant]
     Indication: FIBROMYALGIA
  2. ULTRACET [Concomitant]
     Indication: PAIN
  3. HUMIRA [Suspect]
     Indication: RHEUMATOID ARTHRITIS
     Dates: start: 20090101, end: 20100720
  4. HUMIRA [Suspect]
     Dates: start: 20100720
  5. FOLIC ACID [Concomitant]
     Indication: VITAMIN SUPPLEMENTATION
  6. METHOTREXATE [Concomitant]
     Indication: RHEUMATOID ARTHRITIS
  7. ZYRTEC [Concomitant]
     Indication: HYPERSENSITIVITY

REACTIONS (5)
  - DRUG EFFECT DECREASED [None]
  - INJECTION SITE PAIN [None]
  - DRUG DOSE OMISSION [None]
  - RHEUMATOID ARTHRITIS [None]
  - DEVICE MALFUNCTION [None]
